FAERS Safety Report 4562651-3 (Version None)
Quarter: 2005Q1

REPORT INFORMATION
  Report Type: 
  Country: None (occurrence: None)
  Receive Date: 20050124
  Receipt Date: 20050110
  Transmission Date: 20050727
  Serious: Yes (Disabling)
  Sender: FDA-Public Use
  Company Number: 2005011660

PATIENT
  Age: 79 Year
  Sex: Female

DRUGS (2)
  1. LIPITOR [Suspect]
     Indication: TYPE IIA HYPERLIPIDAEMIA
     Dosage: 20 MG (20 MG, 1 IN 1 D), ORAL
     Route: 048
     Dates: start: 20030101
  2. LEVOTHYROXINE SODIUM [Concomitant]

REACTIONS (4)
  - MYALGIA [None]
  - PRURITUS [None]
  - RASH ERYTHEMATOUS [None]
  - WALKING AID USER [None]
